FAERS Safety Report 9458315 (Version 1)
Quarter: 2013Q3

REPORT INFORMATION
  Report Type: Spontaneous
  Country: DE (occurrence: DE)
  Receive Date: 20130814
  Receipt Date: 20130814
  Transmission Date: 20140515
  Serious: Yes (Hospitalization)
  Sender: FDA-Public Use
  Company Number: DE-ELI_LILLY_AND_COMPANY-DE201308000792

PATIENT
  Sex: Male

DRUGS (4)
  1. FORSTEO [Suspect]
     Indication: OSTEOPOROSIS
     Dosage: 20 UG, QD
     Route: 058
     Dates: start: 2012
  2. CALCIUM [Concomitant]
     Dosage: UNK
  3. PERMAX                             /00613002/ [Concomitant]
     Indication: PARKINSON^S DISEASE
     Dosage: UNK
  4. DOPAMINE [Concomitant]
     Dosage: UNK

REACTIONS (2)
  - Parkinson^s disease [Unknown]
  - General physical condition abnormal [Not Recovered/Not Resolved]
